FAERS Safety Report 19174434 (Version 1)
Quarter: 2021Q2

REPORT INFORMATION
  Report Type: Spontaneous
  Country: US (occurrence: US)
  Receive Date: 20210423
  Receipt Date: 20210423
  Transmission Date: 20210717
  Serious: No
  Sender: FDA-Public Use
  Company Number: US-LANNETT COMPANY, INC.-US-2020LAN000345

PATIENT
  Sex: Male

DRUGS (1)
  1. LEVOTHYROXINE SODIUM. [Suspect]
     Active Substance: LEVOTHYROXINE SODIUM
     Indication: PRODUCT USED FOR UNKNOWN INDICATION
     Dosage: UNK
     Route: 063

REACTIONS (10)
  - Abnormal faeces [Not Recovered/Not Resolved]
  - Flatulence [Recovered/Resolved]
  - Exposure via breast milk [Unknown]
  - Gastrooesophageal reflux disease [Not Recovered/Not Resolved]
  - Infantile spitting up [Not Recovered/Not Resolved]
  - Faeces discoloured [Not Recovered/Not Resolved]
  - Crying [Recovered/Resolved]
  - Dairy intolerance [Not Recovered/Not Resolved]
  - Abnormal faeces [Not Recovered/Not Resolved]
  - Infantile colic [Recovered/Resolved]

NARRATIVE: CASE EVENT DATE: 202008
